FAERS Safety Report 8439428-1 (Version None)
Quarter: 2012Q2

REPORT INFORMATION
  Report Type: 
  Country: None (occurrence: None)
  Receive Date: 20120615
  Receipt Date: 20120613
  Transmission Date: 20120825
  Serious: Yes (Hospitalization, Other)
  Sender: FDA-Public Use
  Company Number: US-PFIZER INC-2012143274

PATIENT
  Sex: Female
  Weight: 52.154 kg

DRUGS (11)
  1. CELEXA [Suspect]
     Indication: MAJOR DEPRESSION
     Dosage: UNK
     Dates: start: 20080101
  2. HYDROCODONE [Suspect]
     Indication: PAIN
     Dosage: UNK
     Dates: start: 20080401
  3. CLONAZEPAM [Concomitant]
     Indication: INSOMNIA
     Dosage: 1 MG, DAILY
  4. ZOLOFT [Suspect]
     Dosage: 100 MG, DAILY
     Dates: end: 20080701
  5. PRISTIQ [Suspect]
     Dosage: 50 MG, DAILY
  6. PAXIL [Suspect]
     Indication: MAJOR DEPRESSION
     Dosage: UNK
     Dates: start: 20080101
  7. ZOLOFT [Suspect]
     Indication: MAJOR DEPRESSION
     Dosage: 50 MG, DAILY
     Dates: start: 20010101
  8. PROZAC [Suspect]
     Indication: MAJOR DEPRESSION
     Dosage: UNK
     Dates: start: 20080101
  9. PRISTIQ [Suspect]
     Dosage: 100 MG, DAILY
  10. PRISTIQ [Suspect]
     Indication: MAJOR DEPRESSION
     Dosage: 200 MG, DAILY
     Dates: start: 20080101
  11. WELLBUTRIN [Suspect]
     Indication: MAJOR DEPRESSION
     Dosage: UNK
     Dates: start: 20080101

REACTIONS (11)
  - ABDOMINAL DISTENSION [None]
  - NAUSEA [None]
  - OROPHARYNGEAL PAIN [None]
  - SUICIDE ATTEMPT [None]
  - BUNION [None]
  - ACTIVITIES OF DAILY LIVING IMPAIRED [None]
  - DRUG INEFFECTIVE [None]
  - EATING DISORDER [None]
  - FEELING ABNORMAL [None]
  - DEPRESSION [None]
  - WEIGHT INCREASED [None]
